FAERS Safety Report 6033225-2 (Version None)
Quarter: 2008Q4

REPORT INFORMATION
  Report Type: 
  Country: None (occurrence: None)
  Receive Date: 20081224
  Receipt Date: 20081110
  Transmission Date: 20090506
  Serious: No
  Sender: FDA-Public Use
  Company Number: 2008PV037088

PATIENT
  Age: 58 Year
  Sex: Male
  Weight: 171.9133 kg

DRUGS (6)
  1. SYMLIN [Suspect]
     Indication: TYPE 2 DIABETES MELLITUS
     Dosage: ;SC
     Route: 058
     Dates: start: 20060101, end: 20060401
  2. ACTOS [Concomitant]
  3. METFORMIN [Concomitant]
  4. LISINOPRIL [Concomitant]
  5. NOVOLOG [Concomitant]
  6. LANTUS [Concomitant]

REACTIONS (2)
  - FOOD CRAVING [None]
  - GOUT [None]
